FAERS Safety Report 8370403-1 (Version None)
Quarter: 2012Q2

REPORT INFORMATION
  Report Type: 
  Country: None (occurrence: None)
  Receive Date: 20120518
  Receipt Date: 20120508
  Transmission Date: 20120825
  Serious: Yes (Other)
  Sender: FDA-Public Use
  Company Number: CA-JNJFOC-20120501065

PATIENT
  Sex: Male
  Weight: 73 kg

DRUGS (5)
  1. METFORMIN HCL [Concomitant]
     Route: 065
  2. REMICADE [Suspect]
     Indication: CROHN'S DISEASE
     Route: 042
     Dates: start: 20110427
  3. ALTACE [Concomitant]
     Route: 065
  4. REMICADE [Suspect]
     Route: 042
     Dates: start: 20120305
  5. ASPIRIN [Concomitant]
     Route: 065

REACTIONS (2)
  - PERINEAL PAIN [None]
  - NEOPLASM [None]
